FAERS Safety Report 7927264-1 (Version None)
Quarter: 2011Q4

REPORT INFORMATION
  Report Type: 
  Country: None (occurrence: None)
  Receive Date: 20111118
  Receipt Date: 20111115
  Transmission Date: 20120403
  Serious: Yes (Hospitalization)
  Sender: FDA-Public Use
  Company Number: GB-PFIZER INC-2011175867

PATIENT
  Age: 80 Year
  Sex: Male

DRUGS (8)
  1. CANDESARTAN [Concomitant]
     Indication: CARDIAC FAILURE
     Dosage: 4 MG, 1X/DAY
     Route: 048
     Dates: start: 20110422
  2. ENALAPRIL [Concomitant]
     Indication: CARDIAC FAILURE
     Dosage: 40 MG, 1X/DAY
     Route: 048
     Dates: start: 20110422
  3. WARFARIN SODIUM [Suspect]
     Indication: ATRIAL FIBRILLATION
     Dosage: DOSE AS PER INR MG, UNK
     Route: 048
     Dates: start: 20110419, end: 20110708
  4. SIMVASTATIN [Concomitant]
     Indication: CARDIAC FAILURE
     Dosage: 20 MG, 1X/DAY
     Route: 048
     Dates: start: 20110422
  5. FUROSEMIDE [Concomitant]
     Indication: CARDIAC FAILURE
     Dosage: 20 MG, 1X/DAY
     Route: 048
     Dates: start: 20110601
  6. EPLERENONE [Suspect]
     Indication: CARDIAC FAILURE
     Dosage: 25 MG, 1X/DAY
     Route: 048
     Dates: start: 20101027
  7. BISOPROLOL [Concomitant]
     Indication: CARDIAC FAILURE
     Dosage: 7.5 MG, 1X/DAY
     Route: 048
     Dates: start: 20110422
  8. ALLOPURINOL [Concomitant]
     Indication: GOUT
     Dosage: 100 MG, 1X/DAY
     Route: 048
     Dates: start: 20090812

REACTIONS (1)
  - EPISTAXIS [None]
